FAERS Safety Report 18250788 (Version 1)
Quarter: 2020Q3

REPORT INFORMATION
  Report Type: Spontaneous
  Country: FR (occurrence: FR)
  Receive Date: 20200909
  Receipt Date: 20200909
  Transmission Date: 20201103
  Serious: Yes (Other)
  Sender: FDA-Public Use
  Company Number: FR-ANIPHARMA-2020-FR-000238

PATIENT
  Age: 84 Year
  Sex: Female
  Weight: 57 kg

DRUGS (8)
  1. PARACETAMOL [Suspect]
     Active Substance: ACETAMINOPHEN
     Route: 048
  2. ANASTROZOLE. [Suspect]
     Active Substance: ANASTROZOLE
     Indication: BREAST CANCER
     Dosage: 1 MG DAILY
     Route: 048
     Dates: start: 2016
  3. MOVICOL [Suspect]
     Active Substance: POLYETHYLENE GLYCOL 3350\POTASSIUM CHLORIDE\SODIUM BICARBONATE\SODIUM CHLORIDE
     Route: 048
  4. ZOPICLONE [Suspect]
     Active Substance: ZOPICLONE
     Route: 048
  5. ZYMAD [Suspect]
     Active Substance: CHOLECALCIFEROL
     Route: 048
  6. DIFFU K [Suspect]
     Active Substance: POTASSIUM CHLORIDE
     Route: 048
  7. BROMAZEPAM [Suspect]
     Active Substance: BROMAZEPAM
     Route: 065
  8. LOXAPAC [Suspect]
     Active Substance: LOXAPINE
     Route: 048

REACTIONS (1)
  - Meningioma [Unknown]

NARRATIVE: CASE EVENT DATE: 2019
